FAERS Safety Report 20319873 (Version 3)
Quarter: 2025Q1

REPORT INFORMATION
  Report Type: Spontaneous
  Country: PT (occurrence: PT)
  Receive Date: 20220111
  Receipt Date: 20250109
  Transmission Date: 20250409
  Serious: Yes (Other)
  Sender: JOHNSON AND JOHNSON
  Company Number: PT-JNJFOC-20210937384

PATIENT
  Age: 38 Year
  Sex: Male

DRUGS (9)
  1. TREMFYA [Suspect]
     Active Substance: GUSELKUMAB
     Indication: Psoriasis
     Route: 065
     Dates: start: 202011, end: 20210531
  2. TREMFYA [Suspect]
     Active Substance: GUSELKUMAB
     Indication: Erythrodermic psoriasis
     Route: 065
     Dates: start: 202011
  3. TREMFYA [Suspect]
     Active Substance: GUSELKUMAB
  4. ENTECAVIR [Concomitant]
     Active Substance: ENTECAVIR
     Indication: Chronic hepatitis B
  5. TENOFOVIR [Concomitant]
     Active Substance: TENOFOVIR
     Dates: start: 202006
  6. ETHAMBUTOL [Concomitant]
     Active Substance: ETHAMBUTOL HYDROCHLORIDE
  7. ISONIAZID [Concomitant]
     Active Substance: ISONIAZID
     Indication: Tuberculosis
  8. PYRAZINAMIDE [Concomitant]
     Active Substance: PYRAZINAMIDE
  9. RIFAMPIN [Concomitant]
     Active Substance: RIFAMPIN

REACTIONS (1)
  - Pulmonary tuberculosis [Recovering/Resolving]

NARRATIVE: CASE EVENT DATE: 20210701
